FAERS Safety Report 18996286 (Version 2)
Quarter: 2021Q1

REPORT INFORMATION
  Report Type: Spontaneous
  Country: US (occurrence: US)
  Receive Date: 20210311
  Receipt Date: 20210324
  Transmission Date: 20210420
  Serious: No
  Sender: FDA-Public Use
  Company Number: US-BAUSCH-BL-2021-005758

PATIENT
  Age: 77 Year
  Sex: Female

DRUGS (5)
  1. SIMBRINZA [Suspect]
     Active Substance: BRIMONIDINE TARTRATE\BRINZOLAMIDE
     Indication: PRODUCT USED FOR UNKNOWN INDICATION
     Dosage: IN BOTH EYES, APPROXIMATELY 5 YEARS
     Route: 047
     Dates: end: 20210216
  2. LEVOBUNOLOL HYDROCHLORIDE OPHTHALMIC SOLUTION USP 0.5% [Suspect]
     Active Substance: LEVOBUNOLOL HYDROCHLORIDE
     Indication: GLAUCOMA
     Dosage: ALMOST 5 YEARS AGO, IN BOTH EYES
     Route: 047
  3. LEVOBUNOLOL HYDROCHLORIDE OPHTHALMIC SOLUTION USP 0.5% [Suspect]
     Active Substance: LEVOBUNOLOL HYDROCHLORIDE
     Dosage: IN BOTH EYES
     Route: 047
     Dates: start: 2021, end: 20210216
  4. LATANOPROST OPHTHALMIC SOLUTION 0.005% [Suspect]
     Active Substance: LATANOPROST
     Indication: GLAUCOMA
     Dosage: PROBABLY 8?10 YEARS
     Route: 047
  5. DRY EYES [Concomitant]
     Active Substance: MINERAL OIL\PETROLATUM
     Indication: PRODUCT USED FOR UNKNOWN INDICATION

REACTIONS (9)
  - Eye inflammation [Unknown]
  - Periorbital irritation [Unknown]
  - Wrong dose [Unknown]
  - Blepharitis [Not Recovered/Not Resolved]
  - Eyelids pruritus [Unknown]
  - Product availability issue [Unknown]
  - COVID-19 [Recovered/Resolved]
  - Dysphonia [Recovered/Resolved]
  - Fatigue [Recovered/Resolved]

NARRATIVE: CASE EVENT DATE: 20210102
